FAERS Safety Report 8144881-7 (Version None)
Quarter: 2012Q1

REPORT INFORMATION
  Report Type: 
  Country: None (occurrence: None)
  Receive Date: 20120217
  Receipt Date: 20111109
  Transmission Date: 20120608
  Serious: Yes (Hospitalization)
  Sender: FDA-Public Use
  Company Number: SE-GLAXOSMITHKLINE-B0765225A

PATIENT
  Sex: Male

DRUGS (3)
  1. VOTRIENT [Suspect]
     Indication: RENAL CELL CARCINOMA
     Dosage: 400MG PER DAY
     Route: 065
     Dates: start: 20111027, end: 20111110
  2. SUNITINIB MALATE [Concomitant]
  3. AFINITOR [Concomitant]

REACTIONS (2)
  - EPISTAXIS [None]
  - MUSCLE HAEMORRHAGE [None]
